FAERS Safety Report 4332206-4 (Version None)
Quarter: 2004Q1

REPORT INFORMATION
  Report Type: 
  Country: None (occurrence: None)
  Receive Date: 20040331
  Receipt Date: 20040317
  Transmission Date: 20041129
  Serious: Yes (Life-Threatening, Other)
  Sender: FDA-Public Use
  Company Number: 2004014718

PATIENT
  Age: 85 Year
  Sex: Female

DRUGS (12)
  1. DIFLUCAN [Suspect]
     Indication: PYREXIA
     Dosage: 100 MG (BID), INTRAVENOUS
     Route: 042
     Dates: start: 20040211, end: 20040223
  2. PRODIF (FOSFLUCONAZOLE) [Suspect]
     Indication: ILL-DEFINED DISORDER
     Dosage: 252.3 MG (DAILY), INTRAVENOUS
     Route: 042
     Dates: start: 20040224, end: 20040225
  3. ALL OTHER THERAPEUTIC PRODUCTS [Suspect]
     Indication: HYPERTHERMIA
     Dosage: 0.6 GRAM (BID), INTRAVENOUS
     Route: 042
     Dates: start: 20040215, end: 20040225
  4. CIPROFLOXACIN HYDROCHLORIDE [Concomitant]
  5. FUROSEMIDE [Concomitant]
  6. DIGOXIN [Concomitant]
  7. ALL OTHER THERAPEUTIC PRODUCTS [Concomitant]
  8. GLUCOSE [Concomitant]
  9. SODIUM CHLORIDE [Concomitant]
  10. FLOMOXEF SODIUM [Concomitant]
  11. OMEPRAZOLE [Concomitant]
  12. PROTEAMIN 12X (AMINOACETIC ACID, XYLITOL, ASPARTIC ACID, AMINO ACIDS N [Concomitant]

REACTIONS (13)
  - ALANINE AMINOTRANSFERASE INCREASED [None]
  - ASPARTATE AMINOTRANSFERASE INCREASED [None]
  - BLOOD ALKALINE PHOSPHATASE INCREASED [None]
  - BLOOD CHLORIDE INCREASED [None]
  - BLOOD CREATINE PHOSPHOKINASE INCREASED [None]
  - BLOOD LACTATE DEHYDROGENASE INCREASED [None]
  - BLOOD POTASSIUM DECREASED [None]
  - BLOOD POTASSIUM INCREASED [None]
  - DEPRESSED LEVEL OF CONSCIOUSNESS [None]
  - PYREXIA [None]
  - RENAL IMPAIRMENT [None]
  - RESPIRATORY DISTRESS [None]
  - WHITE BLOOD CELL COUNT INCREASED [None]
